FAERS Safety Report 21232063 (Version 1)
Quarter: 2022Q3

REPORT INFORMATION
  Report Type: Spontaneous
  Country: NL (occurrence: NL)
  Receive Date: 20220819
  Receipt Date: 20220819
  Transmission Date: 20221026
  Serious: Yes (Disabling)
  Sender: FDA-Public Use
  Company Number: None

PATIENT
  Sex: Female
  Weight: 59 kg

DRUGS (10)
  1. IVABRADINE OXALATE [Suspect]
     Active Substance: IVABRADINE OXALATE
     Indication: Sinus tachycardia
     Dosage: 7.5 MILLIGRAM, 12 HOURS (BID, 2X PER DAY 1 TABLET)
     Route: 065
  2. IVABRADINE OXALATE [Suspect]
     Active Substance: IVABRADINE OXALATE
     Dosage: 5 MILLIGRAM, 12 HOURS (BID, 2X PER DAY 1 TABLET)
     Route: 065
     Dates: start: 202109
  3. ISOSORBIDE MONONITRATE [Suspect]
     Active Substance: ISOSORBIDE MONONITRATE
     Indication: Vasospasm
     Dosage: UNK, QD
     Route: 065
     Dates: start: 202112
  4. ATORVASTATIN [Suspect]
     Active Substance: ATORVASTATIN
     Indication: Type IIa hyperlipidaemia
     Dosage: 5 MILLIGRAM, QD (1X PER DAY 5 MG)
     Route: 065
     Dates: start: 2020
  5. ZINC [Concomitant]
     Active Substance: ZINC
     Dosage: TABL
     Route: 065
  6. CHOLECALCIFEROL [Concomitant]
     Active Substance: CHOLECALCIFEROL
     Dosage: 50 MCG TABL
     Route: 065
  7. ASCORBIC ACID [Concomitant]
     Active Substance: ASCORBIC ACID
     Dosage: 500 MG TABL
     Route: 065
  8. CALCIUM [Concomitant]
     Active Substance: CALCIUM
     Dosage: 1000 MG TABL
     Route: 065
  9. CYANOCOBALAMIN [Concomitant]
     Active Substance: CYANOCOBALAMIN
     Dosage: 1000 MCG TABL
     Route: 065
  10. MAGNESIUM CITRATE [Concomitant]
     Active Substance: MAGNESIUM CITRATE
     Dosage: 200 MG TABL
     Route: 065

REACTIONS (2)
  - Pseudohypoglycaemia [Recovering/Resolving]
  - Weight decreased [Recovering/Resolving]
